FAERS Safety Report 6246486-1 (Version None)
Quarter: 2009Q2

REPORT INFORMATION
  Report Type: 
  Country: None (occurrence: None)
  Receive Date: 20090626
  Receipt Date: 20090406
  Transmission Date: 20091009
  Serious: No
  Sender: FDA-Public Use
  Company Number: US-BAYER-200917720NA

PATIENT
  Age: 39 Year
  Sex: Female
  Weight: 117 kg

DRUGS (9)
  1. YAZ [Suspect]
     Indication: PREMENSTRUAL SYNDROME
     Route: 048
     Dates: start: 20080901
  2. LUXOX NOS [Concomitant]
  3. TEGETRIL XR [Concomitant]
  4. NEURONTIN [Concomitant]
  5. KLONOPIN [Concomitant]
  6. WELLBUTRIN SR [Concomitant]
  7. LAMICTAL [Concomitant]
  8. VITAMIN D [Concomitant]
  9. ZANTAC [Concomitant]

REACTIONS (2)
  - ABNORMAL WITHDRAWAL BLEEDING [None]
  - WITHDRAWAL BLEED [None]
